FAERS Safety Report 19463342 (Version 1)
Quarter: 2021Q2

REPORT INFORMATION
  Report Type: Other
  Country: CA (occurrence: CA)
  Receive Date: 20210625
  Receipt Date: 20210625
  Transmission Date: 20210717
  Serious: Yes (Hospitalization, Other)
  Sender: FDA-Public Use
  Company Number: CA-VALIDUS PHARMACEUTICALS LLC-CA-2021VAL001288

PATIENT

DRUGS (4)
  1. FUROSEMIDE. [Suspect]
     Active Substance: FUROSEMIDE
     Dosage: 40 MG, Q12H
     Route: 065
  2. METOLAZONE. [Suspect]
     Active Substance: METOLAZONE
     Dosage: 2.5 MG, QW
     Route: 065
  3. FUROSEMIDE. [Suspect]
     Active Substance: FUROSEMIDE
     Indication: PRODUCT USED FOR UNKNOWN INDICATION
     Dosage: 60 MG, Q12H
     Route: 065
  4. METOLAZONE. [Suspect]
     Active Substance: METOLAZONE
     Indication: PRODUCT USED FOR UNKNOWN INDICATION
     Dosage: 2.5 MG, QD
     Route: 065

REACTIONS (4)
  - Hypokalaemia [Unknown]
  - Hyponatraemia [Unknown]
  - Therapy change [Unknown]
  - Confusional state [Unknown]
